FAERS Safety Report 13664750 (Version 5)
Quarter: 2018Q2

REPORT INFORMATION
  Report Type: Report from Study
  Country: MX (occurrence: MX)
  Receive Date: 20170619
  Receipt Date: 20180503
  Transmission Date: 20180711
  Serious: Yes (Other)
  Sender: FDA-Public Use
  Company Number: MX-BAYER-2016-049151

PATIENT
  Age: 77 Year
  Sex: Female
  Weight: 54 kg

DRUGS (6)
  1. NEXAVAR [Suspect]
     Active Substance: SORAFENIB
     Indication: THYROID CANCER STAGE IV
     Dosage: 600 MG, QD (2 TAB IN MORNING AND 1 TAB IN NIGHT)
     Dates: start: 20160207, end: 201606
  2. NEXAVAR [Suspect]
     Active Substance: SORAFENIB
     Indication: METASTASES TO LUNG
     Dosage: 200 MG, BID (1 TAB EVERY TWELVW HOURS)
     Dates: start: 201606, end: 2016
  3. NEXAVAR [Suspect]
     Active Substance: SORAFENIB
     Indication: THYROID CANCER STAGE IV
     Dosage: 400 MG, QD
     Route: 048
     Dates: start: 20170123, end: 20170821
  4. OMEPRAZOLE. [Concomitant]
     Active Substance: OMEPRAZOLE
  5. NEXAVAR [Suspect]
     Active Substance: SORAFENIB
     Indication: THYROID CANCER STAGE IV
     Dosage: 400 MG, QD
     Route: 048
     Dates: start: 201611, end: 201612
  6. LEVOTHYROXINE SODIUM. [Concomitant]
     Active Substance: LEVOTHYROXINE SODIUM

REACTIONS (37)
  - Dizziness [Recovered/Resolved]
  - Dermatitis acneiform [Not Recovered/Not Resolved]
  - Bone pain [Unknown]
  - Abdominal pain upper [None]
  - Cough [Not Recovered/Not Resolved]
  - Nausea [Recovered/Resolved]
  - Back pain [Not Recovered/Not Resolved]
  - Asthenia [Not Recovered/Not Resolved]
  - Feeling of despair [None]
  - Dry skin [Recovered/Resolved]
  - Dyspepsia [Recovered/Resolved]
  - Ear infection [Unknown]
  - Diarrhoea [Not Recovered/Not Resolved]
  - Metastases to lung [Unknown]
  - Neoplasm progression [Not Recovered/Not Resolved]
  - Feeding disorder [Recovered/Resolved]
  - Pneumonia [Not Recovered/Not Resolved]
  - Chest pain [Not Recovered/Not Resolved]
  - Pruritus [Recovered/Resolved]
  - Headache [Not Recovered/Not Resolved]
  - Abdominal pain upper [Recovered/Resolved]
  - Weight decreased [Recovered/Resolved]
  - Abdominal pain upper [Recovered/Resolved]
  - Weight decreased [Not Recovered/Not Resolved]
  - Dizziness [Not Recovered/Not Resolved]
  - Odynophagia [Not Recovered/Not Resolved]
  - Hypophagia [Not Recovered/Not Resolved]
  - Pharyngitis [Unknown]
  - Weight decreased [Unknown]
  - Off label use [None]
  - Decreased appetite [Recovered/Resolved]
  - Tuberculosis [Not Recovered/Not Resolved]
  - Pulmonary pain [Not Recovered/Not Resolved]
  - Pruritus generalised [Recovered/Resolved]
  - Nausea [Recovered/Resolved]
  - Vomiting [Recovered/Resolved]
  - Vomiting [Not Recovered/Not Resolved]

NARRATIVE: CASE EVENT DATE: 201602
